FAERS Safety Report 5519636-X (Version None)
Quarter: 2007Q4

REPORT INFORMATION
  Report Type: 
  Country: None (occurrence: None)
  Receive Date: 20071114
  Receipt Date: 20071102
  Transmission Date: 20080405
  Serious: Yes (Other)
  Sender: FDA-Public Use
  Company Number: 2007SP019417

PATIENT
  Age: 44 Year
  Sex: Female

DRUGS (2)
  1. INTRON A [Suspect]
     Indication: HEPATITIS C
     Dates: start: 20000101, end: 20010101
  2. REBETOL [Suspect]
     Indication: HEPATITIS C
     Dosage: ; PO
     Route: 048
     Dates: start: 20000101, end: 20010101

REACTIONS (8)
  - ASTHENIA [None]
  - CHRONIC LYMPHOCYTIC LEUKAEMIA [None]
  - CONDITION AGGRAVATED [None]
  - DIARRHOEA [None]
  - NAUSEA [None]
  - PANIC DISORDER [None]
  - PLEURISY [None]
  - PNEUMONIA [None]
